FAERS Safety Report 19494555 (Version 1)
Quarter: 2021Q3

REPORT INFORMATION
  Report Type: Spontaneous
  Country: GB (occurrence: GB)
  Receive Date: 20210705
  Receipt Date: 20210705
  Transmission Date: 20211014
  Serious: Yes (Other)
  Sender: FDA-Public Use
  Company Number: NVSC2021GB147926

PATIENT
  Age: 54 Year
  Sex: Male

DRUGS (83)
  1. CALCIUM CHLORIDE. [Suspect]
     Active Substance: CALCIUM CHLORIDE
     Indication: PNEUMONIA
     Dosage: UNK
     Route: 065
  2. CITRIC ACID ANHYDROUS [Suspect]
     Active Substance: ANHYDROUS CITRIC ACID
     Indication: ILL-DEFINED DISORDER
     Dosage: UNK
     Route: 065
  3. FUROSEMIDE. [Suspect]
     Active Substance: FUROSEMIDE
     Indication: ILL-DEFINED DISORDER
     Dosage: 20 MG, QD
     Route: 048
     Dates: start: 2006
  4. LACTULOSE. [Suspect]
     Active Substance: LACTULOSE
     Indication: ILL-DEFINED DISORDER
     Dosage: 10 ML
     Route: 065
     Dates: start: 2006
  5. NORADRENALINE [Suspect]
     Active Substance: NOREPINEPHRINE
     Indication: ILL-DEFINED DISORDER
  6. PIRITON [Suspect]
     Active Substance: CHLORPHENIRAMINE MALEATE
     Indication: PNEUMONIA
     Dosage: UNK
     Route: 065
  7. POTASSIUM CHLORIDE. [Suspect]
     Active Substance: POTASSIUM CHLORIDE
     Dosage: UNK
     Route: 065
  8. ROCEPHIN [Suspect]
     Active Substance: CEFTRIAXONE SODIUM
     Indication: ILL-DEFINED DISORDER
     Dosage: UNK
     Route: 042
  9. SIMVASTATIN. [Suspect]
     Active Substance: SIMVASTATIN
     Indication: PNEUMONIA
     Dosage: 40 MG, QD
     Route: 042
     Dates: start: 2006
  10. SODIUM CHLORIDE. [Suspect]
     Active Substance: SODIUM CHLORIDE
     Indication: ILL-DEFINED DISORDER
     Dosage: 1 %, QD
     Route: 065
     Dates: start: 2006
  11. ASPIRIN. [Concomitant]
     Active Substance: ASPIRIN
     Indication: PRODUCT USED FOR UNKNOWN INDICATION
     Dosage: UNK
     Route: 065
  12. PROPOFOL. [Suspect]
     Active Substance: PROPOFOL
     Indication: ILL-DEFINED DISORDER
     Dosage: UNK
     Route: 042
     Dates: start: 2006
  13. ALFENTANIL. [Suspect]
     Active Substance: ALFENTANIL
     Indication: PNEUMONIA
     Dosage: UNK
     Route: 042
     Dates: start: 2006
  14. DOBUTAMINE [Suspect]
     Active Substance: DOBUTAMINE HYDROCHLORIDE
     Indication: PNEUMONIA
  15. POTASSIUM PHOSPHATE [Suspect]
     Active Substance: POTASSIUM PHOSPHATE
     Indication: ILL-DEFINED DISORDER
     Dosage: UNK
     Route: 065
  16. SODIUM CHLORIDE. [Suspect]
     Active Substance: SODIUM CHLORIDE
     Indication: PNEUMONIA
     Dosage: UNK
     Route: 065
  17. THIAMIN [Suspect]
     Active Substance: THIAMINE
     Indication: PNEUMONIA
     Dosage: UNK
     Route: 065
  18. PANTOPRAZOLE [Concomitant]
     Active Substance: PANTOPRAZOLE
     Indication: PRODUCT USED FOR UNKNOWN INDICATION
     Dosage: UNK
     Route: 065
  19. AMOXICILLIN. [Suspect]
     Active Substance: AMOXICILLIN
     Indication: ILL-DEFINED DISORDER
     Dosage: 1 G, TID
     Route: 042
     Dates: start: 20060913
  20. AQUASEPT [Suspect]
     Active Substance: TRICLOSAN
     Indication: PNEUMONIA
     Dosage: UNK
     Route: 065
     Dates: start: 2006
  21. BACTROBAN [Suspect]
     Active Substance: MUPIROCIN\MUPIROCIN CALCIUM
     Indication: ILL-DEFINED DISORDER
  22. CALCIUM GLUCONATE. [Suspect]
     Active Substance: CALCIUM GLUCONATE
     Indication: PNEUMONIA
     Dosage: 10 ML
     Route: 042
     Dates: start: 2006
  23. CALCIUM GLUCONATE. [Suspect]
     Active Substance: CALCIUM GLUCONATE
     Indication: ILL-DEFINED DISORDER
     Dosage: UNK
     Route: 065
  24. DOBUTAMINE [Suspect]
     Active Substance: DOBUTAMINE HYDROCHLORIDE
     Indication: ILL-DEFINED DISORDER
     Dosage: UNK
     Route: 065
     Dates: start: 2006
  25. FLUCONAZOLE. [Suspect]
     Active Substance: FLUCONAZOLE
     Indication: ILL-DEFINED DISORDER
  26. LORAZEPAM. [Suspect]
     Active Substance: LORAZEPAM
     Indication: PNEUMONIA
     Dosage: UNK
     Route: 065
  27. SODIUM BICARBONATE. [Suspect]
     Active Substance: SODIUM BICARBONATE
     Indication: PNEUMONIA
     Dosage: UNK
     Route: 042
     Dates: start: 2006
  28. AMOXICILLIN. [Suspect]
     Active Substance: AMOXICILLIN
     Indication: PNEUMONIA
     Dosage: 250 MG, QD
     Route: 048
     Dates: start: 20060913
  29. PROPOFOL. [Suspect]
     Active Substance: PROPOFOL
     Indication: PNEUMONIA
     Dosage: UNK
     Route: 042
  30. OMEPRAZOLE. [Suspect]
     Active Substance: OMEPRAZOLE
     Indication: ILL-DEFINED DISORDER
     Dosage: UNK
     Route: 065
  31. OMEPRAZOLE. [Suspect]
     Active Substance: OMEPRAZOLE
     Indication: PNEUMONIA
     Dosage: UNK
     Route: 042
  32. ALFENTANIL. [Suspect]
     Active Substance: ALFENTANIL
     Indication: ILL-DEFINED DISORDER
     Dosage: UNK
     Route: 065
  33. BACTROBAN [Suspect]
     Active Substance: MUPIROCIN\MUPIROCIN CALCIUM
     Indication: PNEUMONIA
     Dosage: UNK
     Route: 065
     Dates: start: 2006
  34. CHLORPHENAMINE [Suspect]
     Active Substance: CHLORPHENIRAMINE MALEATE
     Indication: PNEUMONIA
     Dosage: 40 MG, QD
     Route: 065
     Dates: start: 2006
  35. CLEXANE [Suspect]
     Active Substance: ENOXAPARIN SODIUM
     Indication: PNEUMONIA
     Dosage: UNK
     Route: 065
  36. FLUCONAZOLE. [Suspect]
     Active Substance: FLUCONAZOLE
     Indication: PNEUMONIA
     Dosage: 200 MG, QD
     Route: 042
     Dates: start: 2006
  37. HUMAN ACTRAPID [Suspect]
     Active Substance: INSULIN HUMAN
     Indication: TOXIC EPIDERMAL NECROLYSIS
     Dosage: UNK
     Route: 065
     Dates: start: 2006
  38. HYDROCORTISONE. [Suspect]
     Active Substance: HYDROCORTISONE
     Indication: ILL-DEFINED DISORDER
     Dosage: 100 MG, QD
     Route: 042
     Dates: start: 2006
  39. MAGNESIUM SULFATE. [Suspect]
     Active Substance: MAGNESIUM SULFATE
     Indication: PNEUMONIA
     Dosage: UNK
     Route: 065
     Dates: start: 2006
  40. PHYTOMENADIONE [Suspect]
     Active Substance: PHYTONADIONE
     Indication: PNEUMONIA
     Dosage: UNK
     Route: 065
     Dates: start: 2006
  41. ROCEPHIN [Suspect]
     Active Substance: CEFTRIAXONE SODIUM
     Indication: PNEUMONIA
     Dosage: 2 G
     Route: 042
     Dates: start: 2006
  42. SALBUTAMOL [Suspect]
     Active Substance: ALBUTEROL
     Indication: ILL-DEFINED DISORDER
     Dosage: 1 DF
     Route: 065
     Dates: start: 2006
  43. TINZAPARIN [Suspect]
     Active Substance: TINZAPARIN
     Indication: PNEUMONIA
     Dosage: UNK
     Route: 065
  44. METOCLOPRAMIDE. [Concomitant]
     Active Substance: METOCLOPRAMIDE
     Indication: PRODUCT USED FOR UNKNOWN INDICATION
     Dosage: UNK
     Route: 065
  45. ZOPICLONE [Concomitant]
     Active Substance: ZOPICLONE
     Indication: PRODUCT USED FOR UNKNOWN INDICATION
     Dosage: UNK
     Route: 065
  46. CITRIC ACID ANHYDROUS [Suspect]
     Active Substance: ANHYDROUS CITRIC ACID
     Indication: PNEUMONIA
     Dosage: 100 MG, QD
     Route: 065
     Dates: start: 2006
  47. FRAGMIN [Suspect]
     Active Substance: DALTEPARIN SODIUM
     Indication: ILL-DEFINED DISORDER
  48. LACTULOSE. [Suspect]
     Active Substance: LACTULOSE
     Indication: PNEUMONIA
     Dosage: UNK
     Route: 065
  49. MAGNESIUM SULFATE. [Suspect]
     Active Substance: MAGNESIUM SULFATE
     Indication: ILL-DEFINED DISORDER
     Dosage: UNK (10ML/50 PERCENT 8MMOLS/50 MLS)
     Route: 041
     Dates: start: 2006
  50. POTASSIUM CANRENOATE [Suspect]
     Active Substance: CANRENOATE POTASSIUM
     Indication: ILL-DEFINED DISORDER
     Dosage: UNK
     Route: 065
  51. SILVER SULPHADIAZINE [Suspect]
     Active Substance: SILVER SULFADIAZINE
     Indication: PNEUMONIA
     Dosage: UNK
     Route: 065
     Dates: start: 2006
  52. TINZAPARIN [Suspect]
     Active Substance: TINZAPARIN
     Indication: ILL-DEFINED DISORDER
     Dosage: 3500 UG
     Route: 065
  53. VITAMIN B COMPLEX NOS [Suspect]
     Active Substance: CYANOCOBALAMIN\PYRIDOXINE HYDROCHLORIDE\RIBOFLAVIN\SODIUM PANTOTHENATE\THIAMINE HYDROCHLORIDE\VITAMIN B COMPLEX
     Indication: ILL-DEFINED DISORDER
     Dosage: UNK
     Route: 065
  54. FRAGMIN [Suspect]
     Active Substance: DALTEPARIN SODIUM
     Indication: PNEUMONIA
     Dosage: UNK UNK, QD (2500 IU/DL)
     Route: 058
  55. HUMAN ACTRAPID [Suspect]
     Active Substance: INSULIN HUMAN
     Indication: PNEUMONIA
     Dosage: UNK
     Route: 065
     Dates: start: 2006
  56. NORADRENALINE [Suspect]
     Active Substance: NOREPINEPHRINE
     Indication: PNEUMONIA
     Dosage: UNK
     Route: 065
  57. PHYTOMENADIONE [Suspect]
     Active Substance: PHYTONADIONE
     Indication: ILL-DEFINED DISORDER
     Dosage: UNK
     Route: 065
  58. POTASSIUM CHLORIDE. [Suspect]
     Active Substance: POTASSIUM CHLORIDE
     Indication: ILL-DEFINED DISORDER
     Dosage: UNK
     Route: 065
     Dates: start: 2006
  59. SIMVASTATIN. [Suspect]
     Active Substance: SIMVASTATIN
     Indication: ILL-DEFINED DISORDER
     Dosage: 40 MG, QD
     Route: 042
  60. CIPROFLOXACIN. [Concomitant]
     Active Substance: CIPROFLOXACIN
     Indication: PRODUCT USED FOR UNKNOWN INDICATION
     Dosage: UNK
     Route: 065
  61. PARACETAMOL [Suspect]
     Active Substance: ACETAMINOPHEN
     Indication: ILL-DEFINED DISORDER
     Dosage: UNK
     Route: 065
     Dates: start: 2006
  62. CALCIUM CHLORIDE. [Suspect]
     Active Substance: CALCIUM CHLORIDE
     Indication: ILL-DEFINED DISORDER
     Dosage: UNK
     Route: 065
     Dates: start: 2006
  63. CLEXANE [Suspect]
     Active Substance: ENOXAPARIN SODIUM
     Indication: ILL-DEFINED DISORDER
     Dosage: 20 MG, QD
     Route: 065
     Dates: start: 2006
  64. FUROSEMIDE. [Suspect]
     Active Substance: FUROSEMIDE
     Indication: PNEUMONIA
     Dosage: 40 MG, QD
     Route: 042
     Dates: start: 2006
  65. HEPARIN SODIUM. [Suspect]
     Active Substance: HEPARIN SODIUM
     Indication: PRODUCT USED FOR UNKNOWN INDICATION
     Dosage: 3500 ?G
     Route: 065
  66. LANSOPRAZOLE. [Suspect]
     Active Substance: LANSOPRAZOLE
     Indication: ILL-DEFINED DISORDER
     Dosage: 30 MG, QD
     Route: 065
     Dates: start: 2006
  67. POTASSIUM CHLORIDE. [Suspect]
     Active Substance: POTASSIUM CHLORIDE
     Indication: PNEUMONIA
     Dosage: 6 DF
     Route: 065
     Dates: start: 2006
  68. SALBUTAMOL [Suspect]
     Active Substance: ALBUTEROL
     Indication: PNEUMONIA
     Dosage: UNK
     Route: 065
  69. SILVER SULPHADIAZINE [Suspect]
     Active Substance: SILVER SULFADIAZINE
     Indication: ILL-DEFINED DISORDER
     Dosage: UNK
     Route: 065
  70. ERYTHROMYCIN. [Concomitant]
     Active Substance: ERYTHROMYCIN
     Indication: PRODUCT USED FOR UNKNOWN INDICATION
     Dosage: UNK
     Route: 065
  71. MIDODRINE [Concomitant]
     Active Substance: MIDODRINE
     Indication: PRODUCT USED FOR UNKNOWN INDICATION
     Dosage: UNK
     Route: 065
  72. TAZOCIN [Concomitant]
     Active Substance: PIPERACILLIN SODIUM\TAZOBACTAM SODIUM
     Indication: PRODUCT USED FOR UNKNOWN INDICATION
     Dosage: UNK
     Route: 065
  73. PARACETAMOL [Suspect]
     Active Substance: ACETAMINOPHEN
     Indication: PNEUMONIA
     Dosage: UNK
     Route: 065
  74. AQUASEPT [Suspect]
     Active Substance: TRICLOSAN
     Indication: ILL-DEFINED DISORDER
     Dosage: UNK
     Route: 065
  75. HEPARIN CALCIUM [Suspect]
     Active Substance: HEPARIN CALCIUM
     Indication: ILL-DEFINED DISORDER
     Dosage: UNK
     Route: 065
     Dates: start: 2006
  76. HUMAN ACTRAPID [Suspect]
     Active Substance: INSULIN HUMAN
     Indication: DIABETES MELLITUS
     Dosage: UNK (50 UNITS/50ML)
     Route: 042
     Dates: start: 2006
  77. LORAZEPAM. [Suspect]
     Active Substance: LORAZEPAM
     Indication: ILL-DEFINED DISORDER
     Dosage: 2 MG (AT A DOSE OF 1?2 MG)
     Route: 065
     Dates: start: 2006
  78. PIRITON [Suspect]
     Active Substance: CHLORPHENIRAMINE MALEATE
     Indication: ILL-DEFINED DISORDER
  79. SODIUM BICARBONATE. [Suspect]
     Active Substance: SODIUM BICARBONATE
     Indication: ILL-DEFINED DISORDER
     Dosage: 100 MG, QH
     Route: 042
     Dates: start: 2006
  80. THIAMIN [Suspect]
     Active Substance: THIAMINE
     Indication: ILL-DEFINED DISORDER
     Dosage: 100 MG, QD
     Route: 065
  81. ATROVENT [Concomitant]
     Active Substance: IPRATROPIUM BROMIDE
     Indication: PRODUCT USED FOR UNKNOWN INDICATION
     Dosage: UNK
     Route: 065
  82. CO?AMOXICLAV [Concomitant]
     Active Substance: AMOXICILLIN\CLAVULANATE POTASSIUM
     Indication: PRODUCT USED FOR UNKNOWN INDICATION
     Dosage: UNK
     Route: 065
  83. VANCOMYCIN [Concomitant]
     Active Substance: VANCOMYCIN
     Indication: PRODUCT USED FOR UNKNOWN INDICATION
     Dosage: UNK
     Route: 065

REACTIONS (2)
  - Off label use [Unknown]
  - Toxic epidermal necrolysis [Unknown]

NARRATIVE: CASE EVENT DATE: 2006
